FAERS Safety Report 24931888 (Version 1)
Quarter: 2025Q1

REPORT INFORMATION
  Report Type: Spontaneous
  Country: US (occurrence: US)
  Receive Date: 20250205
  Receipt Date: 20250205
  Transmission Date: 20250409
  Serious: Yes (Other)
  Sender: BRISTOL-MYERS SQUIBB COMPANY
  Company Number: US-BRISTOL-MYERS SQUIBB COMPANY-2025-014330

PATIENT
  Age: 83 Year
  Sex: Male
  Weight: 144.24 kg

DRUGS (1)
  1. POMALYST [Suspect]
     Active Substance: POMALIDOMIDE
     Indication: Product used for unknown indication
     Route: 048
     Dates: start: 20231226, end: 20250127

REACTIONS (2)
  - Cardiac failure congestive [Unknown]
  - Off label use [Unknown]

NARRATIVE: CASE EVENT DATE: 20250127
